FAERS Safety Report 8669351 (Version 2)
Quarter: 2013Q4

REPORT INFORMATION
  Report Type: Spontaneous
  Country: US (occurrence: US)
  Receive Date: 20120717
  Receipt Date: 20131101
  Transmission Date: 20140711
  Serious: Yes (Other)
  Sender: FDA-Public Use
  Company Number: US-009507513-1207USA002798

PATIENT
  Age: 60 Year
  Sex: 0

DRUGS (3)
  1. JANUVIA [Suspect]
     Indication: TYPE 2 DIABETES MELLITUS
     Route: 048
  2. INDERAL [Concomitant]
  3. METFORMIN [Concomitant]

REACTIONS (1)
  - Pancreatitis [Recovering/Resolving]
